FAERS Safety Report 7222594-3 (Version None)
Quarter: 2011Q1

REPORT INFORMATION
  Report Type: 
  Country: None (occurrence: None)
  Receive Date: 20110106
  Receipt Date: 20110106
  Transmission Date: 20110831
  Serious: Yes (Hospitalization)
  Sender: FDA-Public Use
  Company Number: None

PATIENT
  Age: 39 Year
  Sex: Female
  Weight: 76.7486 kg

DRUGS (4)
  1. IXABEPILONE 45 MG VIAL BRISTOL-MYERS SQUIBB [Suspect]
     Indication: METASTASIS
     Dosage: 40 MG /M2 Q21 DAYS IV
     Route: 042
     Dates: start: 20101104, end: 20101205
  2. IXABEPILONE 45 MG VIAL BRISTOL-MYERS SQUIBB [Suspect]
     Indication: NEOPLASM
     Dosage: 40 MG /M2 Q21 DAYS IV
     Route: 042
     Dates: start: 20101104, end: 20101205
  3. DASATINIB 50 MG BRISTOL-MYERS SQUIBB [Suspect]
     Indication: METASTASIS
     Dosage: 100 MG DAILY PO
     Route: 048
     Dates: start: 20101104, end: 20101205
  4. DASATINIB 50 MG BRISTOL-MYERS SQUIBB [Suspect]
     Indication: NEOPLASM
     Dosage: 100 MG DAILY PO
     Route: 048
     Dates: start: 20101104, end: 20101205

REACTIONS (2)
  - ANAEMIA [None]
  - MALIGNANT PLEURAL EFFUSION [None]
